FAERS Safety Report 20465697 (Version 6)
Quarter: 2022Q4

REPORT INFORMATION
  Report Type: Report from Study
  Country: US (occurrence: US)
  Receive Date: 20220212
  Receipt Date: 20221004
  Transmission Date: 20230113
  Serious: No
  Sender: FDA-Public Use
  Company Number: US-NOVARTISTESTPH-NVSC2022US032786

PATIENT
  Sex: Male

DRUGS (2)
  1. COSENTYX [Suspect]
     Active Substance: SECUKINUMAB
     Indication: Psoriatic arthropathy
     Dosage: UNK UNK, QW, ONCE A WEEK FOR 5 WEEKS
     Route: 065
  2. COSENTYX [Suspect]
     Active Substance: SECUKINUMAB
     Dosage: UNK UNK, QMO (Q4 WEEKS)
     Route: 065

REACTIONS (4)
  - COVID-19 [Recovering/Resolving]
  - Arthritis [Recovering/Resolving]
  - Psoriasis [Recovering/Resolving]
  - Rash macular [Unknown]
